FAERS Safety Report 7720163-X (Version None)
Quarter: 2011Q3

REPORT INFORMATION
  Report Type: 
  Country: None (occurrence: None)
  Receive Date: 20110826
  Receipt Date: 20110826
  Transmission Date: 20111222
  Serious: Yes (Other)
  Sender: FDA-Public Use
  Company Number: None

PATIENT
  Age: 95 Year
  Sex: Female
  Weight: 34.0198 kg

DRUGS (1)
  1. NISOLDIPINE [Suspect]
     Indication: HYPERTENSION
     Dosage: 25.5MG QD ORAL
     Route: 048
     Dates: start: 20110312, end: 20110318

REACTIONS (4)
  - FURUNCLE [None]
  - THROAT TIGHTNESS [None]
  - PRODUCT SUBSTITUTION ISSUE [None]
  - RASH [None]
